FAERS Safety Report 6727544-1 (Version None)
Quarter: 2010Q2

REPORT INFORMATION
  Report Type: 
  Country: None (occurrence: None)
  Receive Date: 20100517
  Receipt Date: 20100503
  Transmission Date: 20101027
  Serious: Yes (Other)
  Sender: FDA-Public Use
  Company Number: PHHY2010US27752

PATIENT
  Sex: Male

DRUGS (1)
  1. AFINITOR [Suspect]
     Indication: RENAL CELL CARCINOMA
     Dosage: 10 MG, QD
     Route: 048
     Dates: start: 20100222, end: 20100322

REACTIONS (7)
  - BILIARY DILATATION [None]
  - BLOOD GLUCOSE INCREASED [None]
  - FUNGAL INFECTION [None]
  - HEPATIC INFECTION FUNGAL [None]
  - HYPERBILIRUBINAEMIA [None]
  - JAUNDICE [None]
  - RENAL MASS [None]
